FAERS Safety Report 5929961-6 (Version None)
Quarter: 2008Q4

REPORT INFORMATION
  Report Type: 
  Country: None (occurrence: None)
  Receive Date: 20081024
  Receipt Date: 20081017
  Transmission Date: 20090506
  Serious: Yes (Other)
  Sender: FDA-Public Use
  Company Number: US-ASTRAZENECA-2008UW23051

PATIENT
  Age: 65 Year
  Sex: Female
  Weight: 82.6 kg

DRUGS (4)
  1. CRESTOR [Suspect]
     Indication: BLOOD CHOLESTEROL INCREASED
     Route: 048
     Dates: start: 20081006
  2. SYNTHROID [Concomitant]
  3. METFORMIN HYDROCHLORIDE [Concomitant]
  4. CYMBALTA [Concomitant]

REACTIONS (11)
  - AGITATION [None]
  - ASTHENIA [None]
  - BLOOD GLUCOSE ABNORMAL [None]
  - FEELING ABNORMAL [None]
  - INCOHERENT [None]
  - MIGRAINE [None]
  - MUSCLE SPASMS [None]
  - NAUSEA [None]
  - SWEAT GLAND DISORDER [None]
  - TREMOR [None]
  - VOMITING [None]
